FAERS Safety Report 8805918 (Version 1)
Quarter: 2012Q4

REPORT INFORMATION
  Report Type: Spontaneous
  Country: DE (occurrence: None)
  Receive Date: 20120918
  Receipt Date: 20120918
  Transmission Date: 20130627
  Serious: Yes (Death, Hospitalization)
  Sender: FDA-Public Use
  Company Number: GER/GER/12/0025781

PATIENT
  Age: 89 Year
  Sex: Male

DRUGS (16)
  1. ALFUZOSIN [Suspect]
     Indication: DRUG USE FOR UNKNOWN INDICATION
     Dosage: 10 mg, 1 in 1 d
  2. RISPERIDONE [Suspect]
     Indication: DRUG USE FOR UNKNOWN INDICATION
     Dosage: 1 mg, 1 in 1 d, 1.5 mg, 1 in 1 d
  3. RISPERIDONE [Suspect]
     Indication: DRUG USE FOR UNKNOWN INDICATION
  4. MELPERONE [Suspect]
     Indication: DRUG USE FOR UNKNOWN INDICATION
     Dosage: 50 mg, 4 in 1 d, 50 mg, 6 in 1 d
  5. MELPERONE [Suspect]
     Indication: DRUG USE FOR UNKNOWN INDICATION
  6. MELPERONE [Suspect]
     Indication: DRUG USE FOR UNKNOWN INDICATION
  7. HALOPERIDOL [Suspect]
     Indication: DRUG USE FOR UNKNOWN INDICATION
     Dosage: 5 mg, 1 in 1 d, 2.5 mg, 1 in 1 d
  8. HALOPERIDOL [Suspect]
     Indication: DRUG USE FOR UNKNOWN INDICATION
  9. GALANTAMINE [Suspect]
     Indication: DRUG USE FOR UNKNOWN INDICATION
     Dosage: 16 mg, 1 in 1 d
  10. BISOPROLOL (BISOPROLOL) [Concomitant]
  11. HYDROCHLOROTHIAZIDE (HYDROCHLOROTHIAZIDE) [Concomitant]
  12. ASPIRIN (ACETYLSALICYCLIC ACID [Concomitant]
  13. LORAZEPAM (LORAZEPAM) [Concomitant]
  14. ISOSORBIDE DINITRATE (ISOSORBIDE DINITRATE) [Concomitant]
  15. CAPTOPRIL (CAPTOPRIL) [Concomitant]
  16. OXAZEPAM (OXAZEPAM) [Concomitant]

REACTIONS (10)
  - Sudden death [None]
  - Anxiety [None]
  - Aggression [None]
  - Confusional state [None]
  - Fatigue [None]
  - Fall [None]
  - Arrhythmia [None]
  - Embolism [None]
  - Hypotension [None]
  - Drug interaction [None]
